FAERS Safety Report 6672244-X (Version None)
Quarter: 2010Q2

REPORT INFORMATION
  Report Type: 
  Country: None (occurrence: None)
  Receive Date: 20100408
  Receipt Date: 20100329
  Transmission Date: 20101027
  Serious: No
  Sender: FDA-Public Use
  Company Number: US-BIOGENIDEC-2010BI010371

PATIENT
  Age: 40 Year
  Sex: Female

DRUGS (3)
  1. TYSABRI [Suspect]
     Indication: MULTIPLE SCLEROSIS
     Route: 042
     Dates: start: 20100205, end: 20100205
  2. FLEXERIL [Concomitant]
     Indication: MOBILITY DECREASED
     Route: 048
     Dates: start: 20080101
  3. FLEXERIL [Concomitant]
     Indication: TREMOR
     Route: 048
     Dates: start: 20080101

REACTIONS (1)
  - INFUSION SITE RASH [None]
